FAERS Safety Report 24338722 (Version 1)
Quarter: 2024Q3

REPORT INFORMATION
  Report Type: Spontaneous
  Country: ES (occurrence: ES)
  Receive Date: 20240919
  Receipt Date: 20240919
  Transmission Date: 20241016
  Serious: Yes (Other)
  Sender: B BRAUN
  Company Number: ES-B.Braun Medical Inc.-2161812

PATIENT
  Age: 73 Year
  Sex: Female

DRUGS (2)
  1. POTASSIUM CHLORIDE [Suspect]
     Active Substance: POTASSIUM CHLORIDE
     Indication: Hypokalaemia
  2. DEXTROSE [Suspect]
     Active Substance: DEXTROSE\DEXTROSE MONOHYDRATE

REACTIONS (2)
  - Hyperglycaemia [Recovered/Resolved]
  - Hyperkalaemia [Recovered/Resolved]
